FAERS Safety Report 21524404 (Version 1)
Quarter: 2022Q4

REPORT INFORMATION
  Report Type: Report from Study
  Country: US (occurrence: US)
  Receive Date: 20221029
  Receipt Date: 20221029
  Transmission Date: 20230113
  Serious: No
  Sender: FDA-Public Use
  Company Number: US-NOVARTISTESTPH-NVSC2022US242856

PATIENT
  Sex: Female

DRUGS (1)
  1. COSENTYX [Suspect]
     Active Substance: SECUKINUMAB
     Indication: Psoriasis
     Dosage: 300 MG, QW 0, 1, 2, 3, AND THEN 4 THEN EVERY 4 WEEKS AFTER THAT
     Route: 058

REACTIONS (1)
  - Rash pruritic [Not Recovered/Not Resolved]
